FAERS Safety Report 9371069 (Version 3)
Quarter: 2013Q3

REPORT INFORMATION
  Report Type: Report from Study
  Country: US (occurrence: US)
  Receive Date: 20130627
  Receipt Date: 20130910
  Transmission Date: 20140515
  Serious: Yes (Hospitalization)
  Sender: FDA-Public Use
  Company Number: US-ROCHE-1221736

PATIENT
  Age: 74 Year
  Sex: Male
  Weight: 90.8 kg

DRUGS (16)
  1. ZELBORAF [Suspect]
     Indication: METASTATIC MALIGNANT MELANOMA
     Route: 048
     Dates: start: 20130405
  2. ZELBORAF [Suspect]
     Route: 048
     Dates: start: 20130320
  3. SYNTHROID [Concomitant]
  4. TYLENOL [Concomitant]
  5. ASPIRIN [Concomitant]
  6. ROBITUSSIN AC (UNITED STATES) [Concomitant]
  7. LOZOL [Concomitant]
  8. MEVACOR [Concomitant]
  9. MEDROL [Concomitant]
  10. LOPRESSOR [Concomitant]
  11. K-DUR [Concomitant]
  12. COMPAZINE [Concomitant]
  13. PHENERGAN [Concomitant]
  14. CALAN [Concomitant]
  15. AMBIEN [Concomitant]
  16. COUMADIN [Concomitant]

REACTIONS (13)
  - Heart rate irregular [Not Recovered/Not Resolved]
  - Dyspnoea [Not Recovered/Not Resolved]
  - Rash generalised [Not Recovered/Not Resolved]
  - Decreased appetite [Not Recovered/Not Resolved]
  - Cough [Not Recovered/Not Resolved]
  - Pneumonia [Not Recovered/Not Resolved]
  - Dehydration [Not Recovered/Not Resolved]
  - Hypokalaemia [Not Recovered/Not Resolved]
  - Alopecia [Not Recovered/Not Resolved]
  - Dyspnoea [Recovered/Resolved]
  - Asthenia [Not Recovered/Not Resolved]
  - Rash [Not Recovered/Not Resolved]
  - Skin papilloma [Not Recovered/Not Resolved]
